FAERS Safety Report 7408974-1 (Version None)
Quarter: 2011Q2

REPORT INFORMATION
  Report Type: 
  Country: None (occurrence: None)
  Receive Date: 20110412
  Receipt Date: 20110330
  Transmission Date: 20111010
  Serious: Yes (Hospitalization)
  Sender: FDA-Public Use
  Company Number: US-ELI_LILLY_AND_COMPANY-US201104000310

PATIENT
  Sex: Female

DRUGS (4)
  1. EVISTA [Suspect]
     Indication: OSTEOPOROSIS
     Dosage: 60 MG, QD
     Dates: end: 20100201
  2. AMLODIPINE [Concomitant]
     Dosage: 1 DF, UNK
  3. FORTEO [Suspect]
     Dosage: 20 UG, QD
     Dates: start: 20101201
  4. FORTEO [Suspect]
     Indication: OSTEOPOROSIS
     Dosage: 20 UG, QD
     Dates: start: 20100908, end: 20101001

REACTIONS (15)
  - CYSTITIS [None]
  - BLOOD URINE PRESENT [None]
  - HEADACHE [None]
  - MICTURITION URGENCY [None]
  - BONE DENSITY DECREASED [None]
  - DIZZINESS [None]
  - LOWER LIMB FRACTURE [None]
  - VERTIGO POSITIONAL [None]
  - GENERAL SYMPTOM [None]
  - FEELING ABNORMAL [None]
  - URINARY TRACT INFECTION [None]
  - BLOOD PRESSURE DECREASED [None]
  - NASAL CONGESTION [None]
  - DRUG INEFFECTIVE [None]
  - SNEEZING [None]
